FAERS Safety Report 11972980 (Version 1)
Quarter: 2016Q1

REPORT INFORMATION
  Report Type: Spontaneous
  Country: JP (occurrence: JP)
  Receive Date: 20160128
  Receipt Date: 20160128
  Transmission Date: 20160526
  Serious: Yes (Other)
  Sender: FDA-Public Use
  Company Number: JP-SA-2016SA013722

PATIENT
  Sex: Female

DRUGS (16)
  1. MUCOSTA [Concomitant]
     Active Substance: REBAMIPIDE
     Indication: CONSTIPATION
     Route: 048
  2. SILECE [Concomitant]
     Active Substance: FLUNITRAZEPAM
     Indication: CONSTIPATION
     Route: 048
  3. ALLEGRA [Suspect]
     Active Substance: FEXOFENADINE HYDROCHLORIDE
     Indication: RHINORRHOEA
     Route: 048
  4. THYRADIN [Concomitant]
     Active Substance: LEVOTHYROXINE
     Route: 048
  5. AZITHROMYCIN ANHYDROUS. [Concomitant]
     Active Substance: AZITHROMYCIN ANHYDROUS
     Indication: CONSTIPATION
     Route: 048
  6. ALLEGRA [Suspect]
     Active Substance: FEXOFENADINE HYDROCHLORIDE
     Indication: HYPERSENSITIVITY
     Route: 048
  7. TETRAMIDE [Concomitant]
     Active Substance: MIANSERIN
     Indication: CONSTIPATION
     Route: 048
  8. ALLEGRA [Suspect]
     Active Substance: FEXOFENADINE HYDROCHLORIDE
     Indication: RHINORRHOEA
     Route: 048
  9. PANTOSIN [Concomitant]
     Active Substance: PANTETHINE
     Indication: CONSTIPATION
     Route: 048
  10. LENDORMIN [Concomitant]
     Active Substance: BROTIZOLAM
     Indication: CONSTIPATION
     Route: 048
  11. MAGNESIUM OXIDE. [Concomitant]
     Active Substance: MAGNESIUM OXIDE
     Indication: CONSTIPATION
     Route: 048
  12. ALLEGRA [Suspect]
     Active Substance: FEXOFENADINE HYDROCHLORIDE
     Indication: HYPERSENSITIVITY
     Route: 048
  13. TRYPTANOL [Concomitant]
     Active Substance: AMITRIPTYLINE
     Indication: CONSTIPATION
     Route: 048
  14. CIPROXAN [Concomitant]
     Active Substance: CIPROFLOXACIN
     Indication: CONSTIPATION
     Route: 048
  15. NEUZYM [Concomitant]
     Active Substance: LYSOZYME HYDROCHLORIDE
     Indication: CONSTIPATION
     Route: 048
  16. MUCODYNE [Concomitant]
     Active Substance: CARBOCYSTEINE
     Indication: CONSTIPATION
     Route: 048

REACTIONS (3)
  - Urinary retention [Unknown]
  - Constipation [Unknown]
  - Bladder discomfort [Unknown]
